FAERS Safety Report 16522321 (Version 2)
Quarter: 2019Q3

REPORT INFORMATION
  Report Type: Spontaneous
  Country: US (occurrence: US)
  Receive Date: 20190703
  Receipt Date: 20190723
  Transmission Date: 20191004
  Serious: No
  Sender: FDA-Public Use
  Company Number: US-PFIZER INC-2019280880

PATIENT
  Age: 5 Year
  Sex: Female

DRUGS (2)
  1. RAPAMUNE [Suspect]
     Active Substance: SIROLIMUS
     Indication: ARTERIOVENOUS MALFORMATION
     Dosage: 1.8 ML, 2X/DAY
     Route: 048
     Dates: start: 201604
  2. SIROLIMUS. [Suspect]
     Active Substance: SIROLIMUS
     Indication: VASCULAR MALFORMATION
     Dosage: UNK, DAILY
     Route: 061
     Dates: start: 201605

REACTIONS (4)
  - Platelet count decreased [Unknown]
  - Product use in unapproved indication [Unknown]
  - Off label use [Unknown]
  - Product use issue [Unknown]
